FAERS Safety Report 19503196 (Version 2)
Quarter: 2021Q4

REPORT INFORMATION
  Report Type: Spontaneous
  Country: US (occurrence: None)
  Receive Date: 20210707
  Receipt Date: 20211222
  Transmission Date: 20220303
  Serious: Yes (Other)
  Sender: FDA-Public Use
  Company Number: 2021A576720

PATIENT
  Age: 47 Year
  Sex: Male
  Weight: 90.7 kg

DRUGS (37)
  1. NEXIUM 24HR [Suspect]
     Active Substance: ESOMEPRAZOLE MAGNESIUM
     Indication: Gastrooesophageal reflux disease
     Route: 048
  2. NEXIUM 24HR [Suspect]
     Active Substance: ESOMEPRAZOLE MAGNESIUM
     Indication: Gastrooesophageal reflux disease
     Route: 048
     Dates: end: 2018
  3. PRILOSEC [Suspect]
     Active Substance: OMEPRAZOLE MAGNESIUM
     Indication: Gastrooesophageal reflux disease
     Route: 048
  4. PRILOSEC [Suspect]
     Active Substance: OMEPRAZOLE MAGNESIUM
     Indication: Gastrooesophageal reflux disease
     Route: 048
     Dates: start: 2007, end: 2017
  5. PRILOSEC [Suspect]
     Active Substance: OMEPRAZOLE MAGNESIUM
     Indication: Gastrooesophageal reflux disease
     Dosage: GENERIC
     Route: 065
     Dates: start: 2007
  6. PRILOSEC [Suspect]
     Active Substance: OMEPRAZOLE MAGNESIUM
     Indication: Gastrooesophageal reflux disease
     Dosage: GENERIC
     Route: 065
     Dates: start: 2016, end: 2018
  7. PRILOSEC OTC [Suspect]
     Active Substance: OMEPRAZOLE MAGNESIUM
     Indication: Gastrooesophageal reflux disease
     Route: 048
  8. PRILOSEC OTC [Suspect]
     Active Substance: OMEPRAZOLE MAGNESIUM
     Indication: Gastrooesophageal reflux disease
     Route: 048
     Dates: start: 2007, end: 2018
  9. PREVACID 24 HR [Suspect]
     Active Substance: LANSOPRAZOLE
     Indication: Gastrooesophageal reflux disease
     Route: 065
  10. PREVACID 24 HR [Suspect]
     Active Substance: LANSOPRAZOLE
     Indication: Gastrooesophageal reflux disease
     Route: 065
     Dates: end: 2018
  11. PROTONIX [Suspect]
     Active Substance: PANTOPRAZOLE SODIUM
     Indication: Gastrooesophageal reflux disease
     Route: 065
  12. PROTONIX [Suspect]
     Active Substance: PANTOPRAZOLE SODIUM
     Indication: Gastrooesophageal reflux disease
     Route: 065
     Dates: start: 2007
  13. PROTONIX [Suspect]
     Active Substance: PANTOPRAZOLE SODIUM
     Indication: Gastrooesophageal reflux disease
     Dosage: GENERIC
     Route: 065
     Dates: start: 2007, end: 2009
  14. PROTONIX [Suspect]
     Active Substance: PANTOPRAZOLE SODIUM
     Indication: Gastrooesophageal reflux disease
     Dosage: GENERIC
     Route: 065
     Dates: start: 2017, end: 2018
  15. LISINOPRIL [Concomitant]
     Active Substance: LISINOPRIL
     Indication: Blood pressure abnormal
     Route: 065
     Dates: start: 2007, end: 2015
  16. FUROSEMIDE [Concomitant]
     Active Substance: FUROSEMIDE
     Indication: Blood pressure abnormal
     Route: 065
     Dates: start: 2008, end: 2016
  17. ATORVASTATIN [Concomitant]
     Active Substance: ATORVASTATIN
     Indication: Blood pressure abnormal
     Route: 065
     Dates: start: 2017, end: 2018
  18. SIMVASTATIN [Concomitant]
     Active Substance: SIMVASTATIN
     Indication: Blood pressure abnormal
     Route: 065
     Dates: start: 2011, end: 2017
  19. TRAMADOL HYDROCHLORIDE [Concomitant]
     Active Substance: TRAMADOL HYDROCHLORIDE
     Indication: Pain
     Route: 065
     Dates: start: 2017, end: 2018
  20. ALLOPURINOL [Concomitant]
     Active Substance: ALLOPURINOL
     Indication: Gout
     Route: 065
     Dates: start: 2013
  21. ALLOPURINOL [Concomitant]
     Active Substance: ALLOPURINOL
     Indication: Gout
     Route: 065
     Dates: start: 2016, end: 2018
  22. KEFLEX [Concomitant]
     Active Substance: CEPHALEXIN
     Indication: Infection
     Route: 065
     Dates: start: 2017
  23. VITAMINS [Concomitant]
     Active Substance: VITAMINS
     Indication: Dialysis
     Route: 065
     Dates: start: 2016
  24. WARFARIN [Concomitant]
     Active Substance: WARFARIN
  25. DIVALPROEX SODIUM [Concomitant]
     Active Substance: DIVALPROEX SODIUM
  26. METOPROLOL [Concomitant]
     Active Substance: METOPROLOL
  27. PRAVASTATIN [Concomitant]
     Active Substance: PRAVASTATIN
  28. PREDNISOLONE [Concomitant]
     Active Substance: PREDNISOLONE
  29. QUETIAPINE [Concomitant]
     Active Substance: QUETIAPINE
  30. LEVEMIR [Concomitant]
     Active Substance: INSULIN DETEMIR
  31. FENOFIBRATE [Concomitant]
     Active Substance: FENOFIBRATE
  32. HYDRALAZINE [Concomitant]
     Active Substance: HYDRALAZINE HYDROCHLORIDE
  33. POLYETHYLENE GLYCOL [Concomitant]
     Active Substance: POLYETHYLENE GLYCOL
  34. MECLIZINE [Concomitant]
     Active Substance: MECLIZINE HYDROCHLORIDE
  35. NIZATINIDINE [Concomitant]
  36. DEPAKOTE [Concomitant]
     Active Substance: DIVALPROEX SODIUM
  37. BLEPHAMIDE [Concomitant]
     Active Substance: PREDNISOLONE ACETATE\SULFACETAMIDE SODIUM

REACTIONS (3)
  - Acute kidney injury [Not Recovered/Not Resolved]
  - Chronic kidney disease [Not Recovered/Not Resolved]
  - End stage renal disease [Not Recovered/Not Resolved]

NARRATIVE: CASE EVENT DATE: 20120101
